FAERS Safety Report 8816889 (Version 2)
Quarter: 2013Q1

REPORT INFORMATION
  Report Type: Spontaneous
  Country: FR (occurrence: None)
  Receive Date: 20121022
  Receipt Date: 20121022
  Transmission Date: 20140127
  Serious: Yes (Disabling)
  Sender: FDA-Public Use
  Company Number: TPA2012A07418

PATIENT
  Age: 72 Year
  Sex: Male

DRUGS (4)
  1. ADENURIC [Suspect]
     Indication: HYPERURICAEMIA
     Route: 048
     Dates: start: 20120808, end: 20120822
  2. AMLOR [Concomitant]
  3. CRESTOR [Concomitant]
  4. CLOPITOGREL [Concomitant]

REACTIONS (1)
  - Blindness [None]
